FAERS Safety Report 17972317 (Version 1)
Quarter: 2020Q3

REPORT INFORMATION
  Report Type: Report from Study
  Country: IT (occurrence: IT)
  Receive Date: 20200702
  Receipt Date: 20200702
  Transmission Date: 20201103
  Serious: Yes (Other)
  Sender: FDA-Public Use
  Company Number: IT-TEVA-2020-IT-1793264

PATIENT
  Age: 72 Year
  Sex: Male
  Weight: 64 kg

DRUGS (4)
  1. ADRIBLASTINA [Suspect]
     Active Substance: DOXORUBICIN HYDROCHLORIDE
     Indication: NON-HODGKIN^S LYMPHOMA
     Dosage: 85 MG
     Dates: start: 20200323
  2. RIXATHON 100 MG CONCENTRATE FOR SOLUTION FOR INFUSION [Suspect]
     Active Substance: RITUXIMAB
     Indication: NON-HODGKIN^S LYMPHOMA
     Dosage: 645 MG
     Dates: start: 20200323
  3. VINCRISTINA TEVA [Suspect]
     Active Substance: VINCRISTINE
     Indication: NON-HODGKIN^S LYMPHOMA
     Dosage: 2 MG
     Route: 065
  4. ENDOXAN BAXTER [Suspect]
     Active Substance: CYCLOPHOSPHAMIDE
     Dosage: 1290 MG
     Route: 065
     Dates: start: 20200323

REACTIONS (1)
  - Neutropenia [Recovered/Resolved]

NARRATIVE: CASE EVENT DATE: 20200504
